FAERS Safety Report 21879734 (Version 1)
Quarter: 2023Q1

REPORT INFORMATION
  Report Type: Spontaneous
  Country: US (occurrence: US)
  Receive Date: 20230118
  Receipt Date: 20230118
  Transmission Date: 20230418
  Serious: No
  Sender: FDA-Public Use
  Company Number: US-PERRIGO-22US015091

PATIENT
  Age: 15 Month
  Sex: Female
  Weight: 8.163 kg

DRUGS (2)
  1. IBUPROFEN [Suspect]
     Active Substance: IBUPROFEN
     Indication: Accidental exposure to product
     Dosage: 100 MG, SINGLE
     Route: 048
     Dates: start: 20221115, end: 20221115
  2. IBUPROFEN [Suspect]
     Active Substance: IBUPROFEN
     Indication: Product used for unknown indication
     Dosage: 600 MG, SINGLE
     Route: 048
     Dates: start: 20221115, end: 20221115

REACTIONS (2)
  - Accidental exposure to product by child [Unknown]
  - Product administered to patient of inappropriate age [Recovered/Resolved]

NARRATIVE: CASE EVENT DATE: 20221115
